FAERS Safety Report 5114912-7 (Version None)
Quarter: 2006Q3

REPORT INFORMATION
  Report Type: 
  Country: None (occurrence: None)
  Receive Date: 20060921
  Receipt Date: 20060912
  Transmission Date: 20061208
  Serious: Yes (Hospitalization)
  Sender: FDA-Public Use
  Company Number: 2006109650

PATIENT
  Age: 73 Year
  Sex: Female

DRUGS (4)
  1. ZOLOFT [Suspect]
     Indication: DEPRESSION
     Dosage: 100 MG (50 MG,2 IN 1 D), ORAL
     Route: 048
     Dates: start: 20060727, end: 20060908
  2. SILECE (FLUNITRAZEPAM) [Concomitant]
  3. ROHYPNOL (FLUNITRAZEPAM) [Concomitant]
  4. TRAZODONE HCL [Concomitant]

REACTIONS (10)
  - CENTRAL NERVOUS SYSTEM LESION [None]
  - COORDINATION ABNORMAL [None]
  - DIZZINESS [None]
  - FALL [None]
  - GAIT DISTURBANCE [None]
  - HYPERREFLEXIA [None]
  - ILL-DEFINED DISORDER [None]
  - MOVEMENT DISORDER [None]
  - SENSORY DISTURBANCE [None]
  - THERAPY NON-RESPONDER [None]
